FAERS Safety Report 4337943-3 (Version None)
Quarter: 2004Q2

REPORT INFORMATION
  Report Type: 
  Country: None (occurrence: None)
  Receive Date: 20040408
  Receipt Date: 20040329
  Transmission Date: 20050107
  Serious: Yes (Other)
  Sender: FDA-Public Use
  Company Number: CA-JNJFOC-20040104467

PATIENT
  Age: 40 Year
  Sex: Female
  Weight: 63.6 kg

DRUGS (7)
  1. REMICADE [Suspect]
     Indication: CROHN'S DISEASE
     Dosage: 400 MG, INTRAVENOUS
     Route: 042
     Dates: start: 20031020
  2. REMICADE [Suspect]
     Indication: CROHN'S DISEASE
     Dosage: 400 MG, INTRAVENOUS
     Route: 042
     Dates: start: 20031215
  3. METHOTREXATE [Concomitant]
  4. ZOPICLONE (ZOPICLONE) [Concomitant]
  5. EFFEXOR [Concomitant]
  6. TECNAL (BUTALBITAL W; ASPIRIN, CAFFEINE) TABLETS [Concomitant]
  7. PERCOCET (OXYCOCET) TABLETS [Concomitant]

REACTIONS (4)
  - ALANINE AMINOTRANSFERASE INCREASED [None]
  - ARTHRALGIA [None]
  - ASPARTATE AMINOTRANSFERASE INCREASED [None]
  - BLOOD ALKALINE PHOSPHATASE INCREASED [None]
